FAERS Safety Report 22228139 (Version 2)
Quarter: 2023Q2

REPORT INFORMATION
  Report Type: Spontaneous
  Country: PT (occurrence: PT)
  Receive Date: 20230419
  Receipt Date: 20230615
  Transmission Date: 20230722
  Serious: Yes (Death, Other)
  Sender: FDA-Public Use
  Company Number: PT-PFIZER INC-PV202300069758

PATIENT
  Age: 18 Year
  Sex: Male

DRUGS (1)
  1. INOTUZUMAB OZOGAMICIN [Suspect]
     Active Substance: INOTUZUMAB OZOGAMICIN
     Indication: Acute lymphocytic leukaemia
     Dosage: UNK, CYCLIC
     Dates: start: 202009, end: 202010

REACTIONS (6)
  - Sepsis [Fatal]
  - Corynebacterium infection [Fatal]
  - Cellulite [Fatal]
  - Pneumonia necrotising [Fatal]
  - COVID-19 [Fatal]
  - Neutropenia [Unknown]

NARRATIVE: CASE EVENT DATE: 20200101
